APPROVED DRUG PRODUCT: FLAVORED COLESTID
Active Ingredient: COLESTIPOL HYDROCHLORIDE
Strength: 5GM/PACKET
Dosage Form/Route: GRANULE;ORAL
Application: N017563 | Product #001
Applicant: PFIZER INC
Approved: Approved Prior to Jan 1, 1982 | RLD: Yes | RS: No | Type: DISCN